FAERS Safety Report 16197238 (Version 1)
Quarter: 2019Q2

REPORT INFORMATION
  Report Type: Spontaneous
  Country: US (occurrence: US)
  Receive Date: 20190415
  Receipt Date: 20190415
  Transmission Date: 20190711
  Serious: Yes (Death)
  Sender: FDA-Public Use
  Company Number: US-ROCHE-2302409

PATIENT
  Sex: Male

DRUGS (14)
  1. AZITHROMYCIN ANHYDROUS. [Concomitant]
     Active Substance: AZITHROMYCIN ANHYDROUS
  2. EPCLUSA [Concomitant]
     Active Substance: SOFOSBUVIR\VELPATASVIR
  3. WARFARIN [Concomitant]
     Active Substance: WARFARIN
  4. FISH OIL [Concomitant]
     Active Substance: FISH OIL
  5. OMEPRAZOLE. [Concomitant]
     Active Substance: OMEPRAZOLE
  6. PEG 3350 [Concomitant]
     Active Substance: POLYETHYLENE GLYCOL 3350
  7. LEVOTHYROXINE. [Concomitant]
     Active Substance: LEVOTHYROXINE
  8. LORATADINE. [Concomitant]
     Active Substance: LORATADINE
  9. MAPAP [Concomitant]
     Active Substance: ACETAMINOPHEN
  10. SULFAMETHOXAZOLE/TRIMETHOPRIM [Concomitant]
     Active Substance: SULFAMETHOXAZOLE\TRIMETHOPRIM
     Route: 065
  11. MELATONIN [Concomitant]
     Active Substance: MELATONIN
  12. ESBRIET [Suspect]
     Active Substance: PIRFENIDONE
     Indication: INTERSTITIAL LUNG DISEASE
     Route: 048
     Dates: start: 20170131, end: 201812
  13. GABAPENTIN. [Concomitant]
     Active Substance: GABAPENTIN
  14. LINEZOLID. [Concomitant]
     Active Substance: LINEZOLID

REACTIONS (1)
  - Lung disorder [Fatal]
